FAERS Safety Report 18061834 (Version 1)
Quarter: 2020Q3

REPORT INFORMATION
  Report Type: Report from Study
  Country: US (occurrence: US)
  Receive Date: 20200723
  Receipt Date: 20200723
  Transmission Date: 20201103
  Serious: Yes (Hospitalization)
  Sender: FDA-Public Use
  Company Number: US-TAKEDA-2020TUS030146

PATIENT
  Age: 51 Year
  Sex: Male
  Weight: 79.9 kg

DRUGS (3)
  1. DOXORUBICIN [Suspect]
     Active Substance: DOXORUBICIN
     Indication: NON-RENAL CELL CARCINOMA OF KIDNEY
     Dosage: 42 MILLIGRAM/SQ. METER, Q2WEEKS
     Route: 042
     Dates: start: 20200311
  2. GEMCITABINE. [Suspect]
     Active Substance: GEMCITABINE
     Indication: NON-RENAL CELL CARCINOMA OF KIDNEY
     Dosage: UNK
     Route: 065
  3. IXAZOMIB [Suspect]
     Active Substance: IXAZOMIB
     Indication: NON-RENAL CELL CARCINOMA OF KIDNEY
     Dosage: 5.5 MILLIGRAM, Q2WEEKS
     Route: 048
     Dates: start: 20200311

REACTIONS (2)
  - Asthenia [Unknown]
  - Diarrhoea [Unknown]

NARRATIVE: CASE EVENT DATE: 20200709
